FAERS Safety Report 24416422 (Version 11)
Quarter: 2025Q3

REPORT INFORMATION
  Report Type: Report from Study
  Country: JP (occurrence: JP)
  Receive Date: 20241009
  Receipt Date: 20250714
  Transmission Date: 20251021
  Serious: Yes (Hospitalization)
  Sender: PFIZER
  Company Number: JP-PFIZER INC-PV202400130243

PATIENT
  Age: 76 Year
  Sex: Female
  Weight: 54 kg

DRUGS (29)
  1. ELRANATAMAB [Suspect]
     Active Substance: ELRANATAMAB
     Indication: Plasma cell myeloma refractory
     Route: 058
     Dates: start: 20240924, end: 20240924
  2. ELRANATAMAB [Suspect]
     Active Substance: ELRANATAMAB
     Route: 058
     Dates: start: 20240927, end: 20240927
  3. ELRANATAMAB [Suspect]
     Active Substance: ELRANATAMAB
     Route: 058
     Dates: start: 20241001, end: 20241001
  4. BISOPROLOL [Concomitant]
     Active Substance: BISOPROLOL
     Indication: Atrial fibrillation
     Dosage: 0.625 MG, 1X/DAY
  5. BEPRIDIL [Concomitant]
     Active Substance: BEPRIDIL
     Indication: Atrial fibrillation
     Dosage: 50 MG, 2X/DAY
  6. RABEPRAZOLE [Concomitant]
     Active Substance: RABEPRAZOLE
     Indication: Prophylaxis
     Dosage: 10 MG, 1X/DAY
     Route: 048
     Dates: start: 20230316
  7. RABEPRAZOLE [Concomitant]
     Active Substance: RABEPRAZOLE
     Indication: Abdominal discomfort
  8. VALSARTAN [Concomitant]
     Active Substance: VALSARTAN
     Indication: Hypertension
     Dosage: 40 MG, 1X/DAY
  9. ACYCLOVIR [Concomitant]
     Active Substance: ACYCLOVIR
     Indication: Prophylaxis
     Dosage: 200 MG, 1X/DAY
     Route: 048
     Dates: start: 20240822
  10. ACETAMINOPHEN [Concomitant]
     Active Substance: ACETAMINOPHEN
     Indication: Prophylaxis
     Route: 048
     Dates: start: 20240924, end: 20240924
  11. ACETAMINOPHEN [Concomitant]
     Active Substance: ACETAMINOPHEN
     Route: 048
     Dates: start: 20240927, end: 20240927
  12. ACETAMINOPHEN [Concomitant]
     Active Substance: ACETAMINOPHEN
     Route: 048
     Dates: start: 20241001, end: 20241001
  13. DIPHENHYDRAMINE [Concomitant]
     Active Substance: DIPHENHYDRAMINE
     Indication: Prophylaxis
     Route: 048
     Dates: start: 20240924, end: 20240924
  14. DIPHENHYDRAMINE [Concomitant]
     Active Substance: DIPHENHYDRAMINE
     Route: 048
     Dates: start: 20240927, end: 20240927
  15. DIPHENHYDRAMINE [Concomitant]
     Active Substance: DIPHENHYDRAMINE
     Route: 048
     Dates: start: 20241001, end: 20241001
  16. LENADEX [Concomitant]
     Active Substance: DEXAMETHASONE ACETATE
     Indication: Prophylaxis
     Route: 048
     Dates: start: 20240924, end: 20240924
  17. LENADEX [Concomitant]
     Active Substance: DEXAMETHASONE ACETATE
     Route: 048
     Dates: start: 20240927, end: 20240927
  18. LENADEX [Concomitant]
     Active Substance: DEXAMETHASONE ACETATE
     Route: 048
     Dates: start: 20241001, end: 20241001
  19. CALCIUM CARBONATE\CHOLECALCIFEROL\MAGNESIUM CARBONATE [Concomitant]
     Active Substance: CALCIUM CARBONATE\CHOLECALCIFEROL\MAGNESIUM CARBONATE
  20. PIRENOXINE [Concomitant]
     Active Substance: PIRENOXINE
  21. DEXAMETHASONE SODIUM PHOSPHATE [Concomitant]
     Active Substance: DEXAMETHASONE SODIUM PHOSPHATE
     Dates: start: 20240924, end: 20240924
  22. DEXAMETHASONE SODIUM PHOSPHATE [Concomitant]
     Active Substance: DEXAMETHASONE SODIUM PHOSPHATE
     Dates: start: 20241001, end: 20241001
  23. BIOFERMIN [BIFIDOBACTERIUM NOS] [Concomitant]
     Dates: start: 20240929
  24. CEFEPIME [Concomitant]
     Active Substance: CEFEPIME HYDROCHLORIDE
     Indication: Cytokine release syndrome
     Dates: start: 20240925, end: 20241003
  25. MEROPENEM [Concomitant]
     Active Substance: MEROPENEM
     Indication: Cytokine release syndrome
     Dates: start: 20241003
  26. FILGRASTIM [Concomitant]
     Active Substance: FILGRASTIM
     Indication: Febrile neutropenia
     Dates: start: 20240926, end: 20240927
  27. FILGRASTIM [Concomitant]
     Active Substance: FILGRASTIM
     Dates: start: 20240930, end: 20241002
  28. FILGRASTIM [Concomitant]
     Active Substance: FILGRASTIM
     Dates: start: 20241004, end: 20241006
  29. FILGRASTIM [Concomitant]
     Active Substance: FILGRASTIM
     Dates: start: 20241008, end: 20241008

REACTIONS (2)
  - Uveitis [Recovering/Resolving]
  - Febrile neutropenia [Recovered/Resolved]

NARRATIVE: CASE EVENT DATE: 20240925
